FAERS Safety Report 13329888 (Version 2)
Quarter: 2017Q1

REPORT INFORMATION
  Report Type: Spontaneous
  Country: AU (occurrence: AU)
  Receive Date: 20170313
  Receipt Date: 20170321
  Transmission Date: 20170428
  Serious: Yes (Other)
  Sender: FDA-Public Use
  Company Number: AU-009507513-1703AUS002816

PATIENT
  Age: 50 Year
  Sex: Male

DRUGS (3)
  1. SIMVASTATIN. [Suspect]
     Active Substance: SIMVASTATIN
     Dosage: UNK
     Route: 048
  2. ATORVASTATIN [Interacting]
     Active Substance: ATORVASTATIN
     Dosage: 10-20 MG, UNK
  3. GEMFIBROZIL. [Interacting]
     Active Substance: GEMFIBROZIL
     Dosage: UNK

REACTIONS (2)
  - Myopathy [Recovered/Resolved]
  - Labelled drug-drug interaction medication error [Recovered/Resolved]
